FAERS Safety Report 5303038-5 (Version None)
Quarter: 2007Q2

REPORT INFORMATION
  Report Type: 
  Country: None (occurrence: None)
  Receive Date: 20070420
  Receipt Date: 20070413
  Transmission Date: 20071010
  Serious: Yes (Death)
  Sender: FDA-Public Use
  Company Number: US-AVENTIS-200712652US

PATIENT
  Age: 65 Year
  Sex: Male

DRUGS (1)
  1. TAXOTERE [Suspect]
     Indication: BREAST CANCER
     Dosage: DOSE: UNK

REACTIONS (3)
  - ABDOMINAL PAIN [None]
  - CAECITIS [None]
  - NEUTROPENIA [None]
